FAERS Safety Report 10904057 (Version 1)
Quarter: 2015Q1

REPORT INFORMATION
  Report Type: Spontaneous
  Country: IN (occurrence: None)
  Receive Date: 20150306
  Receipt Date: 20150306
  Transmission Date: 20150721
  Serious: Yes (Hospitalization)
  Sender: FDA-Public Use
  Company Number: UCM201502-000153

PATIENT
  Age: 50 Year
  Sex: Female

DRUGS (4)
  1. DIVALPROEX SODIUM. [Suspect]
     Active Substance: DIVALPROEX SODIUM
     Indication: SCHIZOAFFECTIVE DISORDER
  2. RISPERIDONE (RISPERIDONE) [Suspect]
     Active Substance: RISPERIDONE
     Indication: SCHIZOAFFECTIVE DISORDER
  3. ZUCLOPENTHIXOL (ZUCLOPENTHIXOL) [Concomitant]
  4. TETRAHYDROPALMATINE (TETRAHYDROPALMATINE) [Concomitant]

REACTIONS (2)
  - Drug interaction [None]
  - Hyperammonaemia [None]
